FAERS Safety Report 5805773-9 (Version None)
Quarter: 2008Q3

REPORT INFORMATION
  Report Type: 
  Country: None (occurrence: None)
  Receive Date: 20080708
  Receipt Date: 20080708
  Transmission Date: 20090109
  Serious: No
  Sender: FDA-Public Use
  Company Number: None

PATIENT
  Age: 57 Year
  Sex: Female
  Weight: 66.2252 kg

DRUGS (1)
  1. OMEPRAZOLE 20 MG WALGREN'S [Suspect]
     Indication: GASTROOESOPHAGEAL REFLUX DISEASE
     Dosage: 1 DAILY PO
     Route: 048
     Dates: start: 20080620, end: 20080704

REACTIONS (4)
  - ABDOMINAL PAIN [None]
  - ERUCTATION [None]
  - NAUSEA [None]
  - PRURITUS [None]
